FAERS Safety Report 20651881 (Version 2)
Quarter: 2022Q2

REPORT INFORMATION
  Report Type: Spontaneous
  Country: US (occurrence: US)
  Receive Date: 20220330
  Receipt Date: 20220427
  Transmission Date: 20220721
  Serious: Yes (Hospitalization)
  Sender: FDA-Public Use
  Company Number: US-NOVARTISPH-NVSC2022US069496

PATIENT
  Sex: Female

DRUGS (1)
  1. VOTRIENT [Suspect]
     Active Substance: PAZOPANIB HYDROCHLORIDE
     Indication: Uterine cancer
     Dosage: 400 MG, QD
     Route: 048
     Dates: start: 20220202

REACTIONS (6)
  - COVID-19 [Unknown]
  - Pain [Unknown]
  - Sinus disorder [Unknown]
  - Abdominal discomfort [Unknown]
  - Depression [Unknown]
  - Anxiety [Unknown]
